FAERS Safety Report 13010939 (Version 1)
Quarter: 2016Q4

REPORT INFORMATION
  Report Type: Spontaneous
  Country: US (occurrence: US)
  Receive Date: 20161208
  Receipt Date: 20161208
  Transmission Date: 20170207
  Serious: No
  Sender: FDA-Public Use
  Company Number: US-GLAXOSMITHKLINE-US2016181154

PATIENT
  Sex: Female

DRUGS (1)
  1. VALTREX [Suspect]
     Active Substance: VALACYCLOVIR HYDROCHLORIDE
     Indication: EPSTEIN-BARR VIRUS INFECTION
     Dosage: 3000 MG, 1D

REACTIONS (2)
  - Nausea [Not Recovered/Not Resolved]
  - Lymphadenopathy [Not Recovered/Not Resolved]
